FAERS Safety Report 5170611-7 (Version None)
Quarter: 2006Q4

REPORT INFORMATION
  Report Type: 
  Country: None (occurrence: None)
  Receive Date: 20061212
  Receipt Date: 20061204
  Transmission Date: 20070319
  Serious: Yes (Death)
  Sender: FDA-Public Use
  Company Number: GB-MERCK-0612GBR00015

PATIENT
  Age: 36 Year
  Sex: Female

DRUGS (1)
  1. ARAMINE [Suspect]
     Route: 051

REACTIONS (2)
  - ACUTE HEPATIC FAILURE [None]
  - HYPOTENSION [None]
